FAERS Safety Report 7785604-0 (Version None)
Quarter: 2011Q3

REPORT INFORMATION
  Report Type: 
  Country: None (occurrence: None)
  Receive Date: 20110929
  Receipt Date: 20110921
  Transmission Date: 20111222
  Serious: Yes (Hospitalization)
  Sender: FDA-Public Use
  Company Number: JP-SANOFI-AVENTIS-2011SA058922

PATIENT
  Age: 67 Year
  Sex: Male
  Weight: 62 kg

DRUGS (13)
  1. EFUDEX [Suspect]
     Indication: COLON CANCER
     Route: 040
     Dates: start: 20110706, end: 20110817
  2. LEUCOVORIN CALCIUM [Concomitant]
     Indication: COLON CANCER
     Dosage: CYCCLE: 1-3
     Route: 041
     Dates: start: 20110706, end: 20110803
  3. LEUCOVORIN CALCIUM [Concomitant]
     Route: 041
     Dates: start: 20110817, end: 20110817
  4. EFUDEX [Suspect]
     Route: 041
     Dates: start: 20110706, end: 20110817
  5. POLARAMINE [Concomitant]
     Indication: PREMEDICATION
     Route: 041
     Dates: start: 20110806, end: 20110817
  6. DEXAMETHASONE SODIUM PHOSPHATE [Concomitant]
     Indication: PREMEDICATION
     Route: 041
     Dates: start: 20110806, end: 20110817
  7. KYTRIL [Concomitant]
     Indication: PREMEDICATION
     Route: 041
     Dates: start: 20110706, end: 20110803
  8. ZANTAC [Concomitant]
     Indication: PREMEDICATION
     Route: 041
     Dates: start: 20110706, end: 20110817
  9. OXALIPLATIN [Suspect]
     Route: 041
     Dates: start: 20110817, end: 20110817
  10. ALOXI [Concomitant]
     Indication: PREMEDICATION
     Route: 041
     Dates: start: 20110817, end: 20110817
  11. OXALIPLATIN [Suspect]
     Indication: COLON CANCER
     Dosage: CYCLE 1-3
     Route: 041
     Dates: start: 20110706, end: 20110803
  12. ALLOPURINOL [Concomitant]
     Indication: HYPERURICAEMIA
     Route: 048
  13. URALYT [Concomitant]
     Indication: HYPERURICAEMIA
     Route: 048

REACTIONS (1)
  - HYPERAMMONAEMIA [None]
